FAERS Safety Report 5019191-7 (Version None)
Quarter: 2006Q2

REPORT INFORMATION
  Report Type: 
  Country: None (occurrence: None)
  Receive Date: 20060531
  Receipt Date: 20060518
  Transmission Date: 20061013
  Serious: Yes (Life-Threatening)
  Sender: FDA-Public Use
  Company Number: T200600087

PATIENT
  Age: 86 Year
  Sex: Female

DRUGS (1)
  1. OPTIRAY 320 [Suspect]
     Indication: COMPUTERISED TOMOGRAM
     Dosage: 70 ML, SINGLE, INTRAVENOUS
     Route: 042
     Dates: start: 20060313, end: 20060313

REACTIONS (5)
  - BLOOD PRESSURE DECREASED [None]
  - CONTRAST MEDIA REACTION [None]
  - RASH [None]
  - SHOCK [None]
  - SNEEZING [None]
